FAERS Safety Report 6083738-2 (Version None)
Quarter: 2009Q1

REPORT INFORMATION
  Report Type: 
  Country: None (occurrence: None)
  Receive Date: 20090219
  Receipt Date: 20090209
  Transmission Date: 20090719
  Serious: Yes (Other)
  Sender: FDA-Public Use
  Company Number: US-AVENTIS-200911156US

PATIENT
  Sex: Female

DRUGS (6)
  1. LANTUS [Suspect]
     Route: 058
     Dates: start: 20050101
  2. OPTICLIK (INSULIN INJECTION PEN) [Suspect]
  3. HUMALOG [Concomitant]
  4. LEVOTHYROXINE SODIUM [Concomitant]
     Dosage: DOSE: UNK
  5. CRESTOR [Concomitant]
  6. TOPROL-XL [Concomitant]
     Dosage: DOSE: UNK

REACTIONS (3)
  - CATARACT [None]
  - CONDITION AGGRAVATED [None]
  - VISUAL IMPAIRMENT [None]
